FAERS Safety Report 9924274 (Version 1)
Quarter: 2014Q1

REPORT INFORMATION
  Report Type: Report from Study
  Country: ZA (occurrence: ZA)
  Receive Date: 20140226
  Receipt Date: 20140226
  Transmission Date: 20141002
  Serious: Yes (Death)
  Sender: FDA-Public Use
  Company Number: ZA-ROCHE-1355671

PATIENT
  Sex: Male

DRUGS (6)
  1. MIRCERA [Suspect]
     Indication: NEPHROGENIC ANAEMIA
     Route: 058
     Dates: start: 201309
  2. MIRCERA [Suspect]
     Route: 058
     Dates: start: 20100224
  3. MIRCERA [Suspect]
     Route: 058
     Dates: start: 20100722
  4. MIRCERA [Suspect]
     Route: 058
     Dates: start: 201105
  5. MIRCERA [Suspect]
     Route: 058
     Dates: start: 201111
  6. MIRCERA [Suspect]
     Route: 058
     Dates: start: 201206

REACTIONS (1)
  - Death [Fatal]
